FAERS Safety Report 8900208 (Version 1)
Quarter: 2012Q4

REPORT INFORMATION
  Report Type: 
  Country: US (occurrence: US)
  Receive Date: 20121108
  Receipt Date: 20121108
  Transmission Date: 20130627
  Serious: Yes (Other)
  Sender: FDA-Public Use
  Company Number: US-AMGEN-USASP2012037633

PATIENT
  Sex: Female

DRUGS (5)
  1. ENBREL [Suspect]
     Indication: PRODUCT USED FOR UNKNOWN INDICATION
     Dosage: 50 mg, qwk
     Route: 058
  2. METHOTREXATE [Concomitant]
     Dosage: 2.5 mg, UNK
  3. IBUPROFEN [Concomitant]
     Dosage: 200 mg, UNK
  4. PREDNISONE [Concomitant]
     Dosage: 2.5 mg, UNK
  5. ALEVE [Concomitant]
     Dosage: 220 mg, UNK

REACTIONS (5)
  - Hepatitis B [Unknown]
  - Injection site irritation [Unknown]
  - Injection site reaction [Unknown]
  - Injection site erythema [Unknown]
  - Injection site swelling [Unknown]
